FAERS Safety Report 9158880 (Version 1)
Quarter: 2013Q1

REPORT INFORMATION
  Report Type: Spontaneous
  Country: DK (occurrence: None)
  Receive Date: 20130211
  Receipt Date: 20130211
  Transmission Date: 20140127
  Serious: Yes (Hospitalization)
  Sender: FDA-Public Use
  Company Number: 2013MA000982

PATIENT
  Age: 46 Year
  Sex: Male

DRUGS (1)
  1. METFORMIN HYDROCHLORIDE EXTENDED-RELEASE TABLETS, 750 MG (PUREPAC) (METFORMIN HYDROCHLORIDE) [Suspect]
     Indication: HYPERGLYCAEMIA
     Route: 048
     Dates: start: 20130116, end: 20130120

REACTIONS (2)
  - Diabetic ketoacidosis [None]
  - Asthenia [None]
